FAERS Safety Report 7749823-1 (Version None)
Quarter: 2011Q3

REPORT INFORMATION
  Report Type: 
  Country: None (occurrence: None)
  Receive Date: 20110914
  Receipt Date: 20110909
  Transmission Date: 20111222
  Serious: Yes (Death, Hospitalization)
  Sender: FDA-Public Use
  Company Number: US-SANOFI-AVENTIS-2011SA059068

PATIENT
  Age: 60 Year
  Sex: Male

DRUGS (1)
  1. JEVTANA KIT [Suspect]
     Indication: PROSTATE CANCER
     Route: 041

REACTIONS (3)
  - HEPATIC FAILURE [None]
  - DEATH [None]
  - PANCYTOPENIA [None]
